FAERS Safety Report 10521923 (Version 2)
Quarter: 2015Q2

REPORT INFORMATION
  Report Type: Spontaneous
  Country: US (occurrence: None)
  Receive Date: 20141014
  Receipt Date: 20150407
  Transmission Date: 20150821
  Serious: Yes (Other)
  Sender: FDA-Public Use
  Company Number: LH201400304

PATIENT
  Age: 31 Year
  Sex: Female

DRUGS (2)
  1. PRENATAL VITAMINS [Concomitant]
     Active Substance: VITAMINS
  2. MAKENA [Suspect]
     Active Substance: HYDROXYPROGESTERONE CAPROATE
     Indication: PREMATURE DELIVERY
     Route: 048
     Dates: start: 201409

REACTIONS (6)
  - Discomfort [None]
  - Cervix enlargement [None]
  - Exposure during pregnancy [None]
  - Premature delivery [None]
  - Pain [None]
  - False labour [None]

NARRATIVE: CASE EVENT DATE: 201409
